FAERS Safety Report 19077544 (Version 1)
Quarter: 2021Q1

REPORT INFORMATION
  Report Type: Spontaneous
  Country: US (occurrence: US)
  Receive Date: 20210331
  Receipt Date: 20210331
  Transmission Date: 20210420
  Serious: Yes (Other)
  Sender: FDA-Public Use
  Company Number: US-SUN PHARMACEUTICAL INDUSTRIES LTD-2021R1-287883

PATIENT
  Age: 24 Year
  Sex: Female

DRUGS (5)
  1. BLEOMYCIN [Concomitant]
     Active Substance: BLEOMYCIN SULFATE
     Indication: HODGKIN^S DISEASE
     Route: 065
  2. VINCRISTINE [Concomitant]
     Active Substance: VINCRISTINE
     Indication: HODGKIN^S DISEASE
     Route: 065
  3. DOXORUBICIN [Suspect]
     Active Substance: DOXORUBICIN
     Indication: HODGKIN^S DISEASE
     Route: 065
  4. DACARBAZINE. [Concomitant]
     Active Substance: DACARBAZINE
     Indication: HODGKIN^S DISEASE
     Route: 065
  5. DEXRAZOXANE. [Concomitant]
     Active Substance: DEXRAZOXANE
     Indication: HODGKIN^S DISEASE
     Route: 065

REACTIONS (3)
  - Left ventricular dysfunction [Unknown]
  - Cardiotoxicity [Unknown]
  - Ventricular tachycardia [Unknown]
